FAERS Safety Report 8523213-6 (Version None)
Quarter: 2012Q3

REPORT INFORMATION
  Report Type: 
  Country: None (occurrence: None)
  Receive Date: 20120709
  Receipt Date: 20120613
  Transmission Date: 20120928
  Serious: Yes (Hospitalization)
  Sender: FDA-Public Use
  Company Number: SV-1186381

PATIENT
  Sex: Male

DRUGS (4)
  1. CHLORAMPHENICOL [Concomitant]
  2. AMPICILLIN [Concomitant]
  3. AMIKACIN [Concomitant]
  4. VIGAMOX [Suspect]
     Indication: EYE DISCHARGE
     Dosage: (5% Q1H OS OPHTHALMIC)
     Route: 047

REACTIONS (1)
  - DRUG INEFFECTIVE [None]
